FAERS Safety Report 9867551 (Version 1)
Quarter: 2014Q1

REPORT INFORMATION
  Report Type: Spontaneous
  Country: US (occurrence: US)
  Receive Date: 20140204
  Receipt Date: 20140204
  Transmission Date: 20141002
  Serious: No
  Sender: FDA-Public Use
  Company Number: US-BAYER-2014-017966

PATIENT
  Age: 6 Year
  Sex: Male
  Weight: 43 kg

DRUGS (1)
  1. ALEVE CAPLET [Suspect]
     Dosage: UNK, ONCE
     Route: 048
     Dates: start: 20140201, end: 20140201

REACTIONS (1)
  - Accidental exposure to product by child [None]
